FAERS Safety Report 15324071 (Version 1)
Quarter: 2018Q3

REPORT INFORMATION
  Report Type: Report from Study
  Country: GB (occurrence: GB)
  Receive Date: 20180828
  Receipt Date: 20180828
  Transmission Date: 20181010
  Serious: Yes (Hospitalization, Other)
  Sender: FDA-Public Use
  Company Number: GB-AMGEN-GBRSL2018101614

PATIENT
  Sex: Female

DRUGS (1)
  1. REPATHA [Suspect]
     Active Substance: EVOLOCUMAB
     Indication: PRODUCT USED FOR UNKNOWN INDICATION
     Dosage: UNK
     Route: 065
     Dates: end: 2018

REACTIONS (6)
  - Stent placement [Unknown]
  - Otorrhoea [Unknown]
  - Tinnitus [Unknown]
  - Eustachian tube disorder [Unknown]
  - Balance disorder [Unknown]
  - Deafness [Unknown]

NARRATIVE: CASE EVENT DATE: 2018
